FAERS Safety Report 14194965 (Version 1)
Quarter: 2017Q4

REPORT INFORMATION
  Report Type: Report from Study
  Country: CN (occurrence: CN)
  Receive Date: 20171116
  Receipt Date: 20171116
  Transmission Date: 20180321
  Serious: Yes (Other)
  Sender: FDA-Public Use
  Company Number: CN-MYLANLABS-2017M1071911

PATIENT

DRUGS (3)
  1. DECITABINE. [Suspect]
     Active Substance: DECITABINE
     Indication: NEOPLASM MALIGNANT
     Dosage: 10MG PER DAY FOR 7 DAYS
     Route: 065
  2. ACLARUBICIN [Suspect]
     Active Substance: ACLARUBICIN
     Indication: NEOPLASM MALIGNANT
     Dosage: 10MG PER DAY FOR 7-10 DAYS; 12 HOURS PRIOR TO DECITABINE
     Route: 041
  3. CYTARABINE. [Suspect]
     Active Substance: CYTARABINE
     Indication: NEOPLASM MALIGNANT
     Dosage: 10 MG/M2 PER DAY ONCE EVERY 12 HOURS FOR 10-14 DAYS
     Route: 058

REACTIONS (2)
  - Muscle oedema [Unknown]
  - Pain [Unknown]
